FAERS Safety Report 21643442 (Version 1)
Quarter: 2022Q4

REPORT INFORMATION
  Report Type: Spontaneous
  Country: FR (occurrence: FR)
  Receive Date: 20221125
  Receipt Date: 20221125
  Transmission Date: 20230112
  Serious: Yes (Hospitalization)
  Sender: FDA-Public Use
  Company Number: None

PATIENT
  Age: 49 Year
  Sex: Male
  Weight: 96 kg

DRUGS (1)
  1. TALTZ [Suspect]
     Active Substance: IXEKIZUMAB
     Indication: Psoriatic arthropathy
     Dosage: 80 MG, EVERY 4 WEEKS
     Route: 058
     Dates: start: 20220517, end: 20220901

REACTIONS (1)
  - Tonsil cancer [Recovering/Resolving]

NARRATIVE: CASE EVENT DATE: 20220801
